FAERS Safety Report 8298142-6 (Version None)
Quarter: 2012Q2

REPORT INFORMATION
  Report Type: 
  Country: None (occurrence: None)
  Receive Date: 20120419
  Receipt Date: 20120411
  Transmission Date: 20120825
  Serious: Yes (Hospitalization)
  Sender: FDA-Public Use
  Company Number: US-US-EMD SERONO, INC.-7125285

PATIENT
  Sex: Female
  Weight: 60 kg

DRUGS (3)
  1. REBIF [Suspect]
     Indication: MULTIPLE SCLEROSIS
     Route: 058
     Dates: start: 20120329
  2. IBUPROFEN [Concomitant]
     Indication: PREMEDICATION
  3. MULTI-VITAMIN [Concomitant]
     Indication: PRODUCT USED FOR UNKNOWN INDICATION

REACTIONS (5)
  - ORTHOSTATIC HYPOTENSION [None]
  - WEIGHT INCREASED [None]
  - MUSCULAR WEAKNESS [None]
  - INJECTION SITE PAIN [None]
  - HEADACHE [None]
